FAERS Safety Report 19827520 (Version 2)
Quarter: 2021Q3

REPORT INFORMATION
  Report Type: Spontaneous
  Country: ES (occurrence: ES)
  Receive Date: 20210914
  Receipt Date: 20210916
  Transmission Date: 20211014
  Serious: Yes (Life-Threatening, Hospitalization, Other)
  Sender: FDA-Public Use
  Company Number: ES-MYLANLABS-2021M1005484

PATIENT
  Age: 67 Year
  Sex: Male

DRUGS (16)
  1. DASATINIB. [Suspect]
     Active Substance: DASATINIB
     Indication: LEUKAEMIA CUTIS
     Dosage: 100 MILLIGRAM
     Route: 065
  2. HYDREA [Concomitant]
     Active Substance: HYDROXYUREA
     Indication: BLAST CRISIS IN MYELOGENOUS LEUKAEMIA
  3. FLUDARABINE [Suspect]
     Active Substance: FLUDARABINE PHOSPHATE
     Indication: LEUKAEMIA CUTIS
  4. CYTARABINE. [Suspect]
     Active Substance: CYTARABINE
     Indication: LEUKAEMIA CUTIS
  5. IDARUBICIN [Suspect]
     Active Substance: IDARUBICIN
     Indication: BLAST CELL CRISIS
     Dosage: 10 MILLIGRAM/SQ. METER, CYCLE(ON DAYS 1?3)
     Route: 042
  6. DASATINIB. [Suspect]
     Active Substance: DASATINIB
     Dosage: 100 MILLIGRAM, QD
     Route: 065
  7. CYTARABINE. [Suspect]
     Active Substance: CYTARABINE
     Indication: BLAST CRISIS IN MYELOGENOUS LEUKAEMIA
  8. IDARUBICIN [Suspect]
     Active Substance: IDARUBICIN
     Indication: LEUKAEMIA CUTIS
  9. DASATINIB. [Suspect]
     Active Substance: DASATINIB
     Indication: BLAST CELL CRISIS
     Dosage: INITIALLY AND 140 MG THEREAFTER, TEMPORARY WITHDRAWAL OF DASATINIB WITH SUBSEQUENT DOSE ESCALATION
  10. FLUDARABINE [Suspect]
     Active Substance: FLUDARABINE PHOSPHATE
     Indication: BLAST CELL CRISIS
     Dosage: 30 MILLIGRAM/SQ. METER, CYCLE (ON DAYS 1?4)
     Route: 042
  11. CYTARABINE. [Suspect]
     Active Substance: CYTARABINE
     Indication: BLAST CELL CRISIS
     Dosage: 2 GRAM PER SQUARE METRE, CYCLE (2G/M2 ON DAYS 1?4)
     Route: 042
  12. DASATINIB. [Suspect]
     Active Substance: DASATINIB
     Indication: BLAST CRISIS IN MYELOGENOUS LEUKAEMIA
     Dosage: 140 MILLIGRAM
     Route: 065
  13. FLUDARABINE [Suspect]
     Active Substance: FLUDARABINE PHOSPHATE
     Indication: BLAST CRISIS IN MYELOGENOUS LEUKAEMIA
  14. IDARUBICIN [Suspect]
     Active Substance: IDARUBICIN
     Indication: BLAST CRISIS IN MYELOGENOUS LEUKAEMIA
  15. HYDREA [Concomitant]
     Active Substance: HYDROXYUREA
     Indication: LEUKAEMIA CUTIS
  16. HYDREA [Concomitant]
     Active Substance: HYDROXYUREA
     Indication: BLAST CELL CRISIS
     Dosage: UNK UNK, CYCLE
     Route: 065

REACTIONS (9)
  - Neutropenia [Recovered/Resolved]
  - Staphylococcal infection [Recovered/Resolved]
  - Pyrexia [Recovered/Resolved]
  - Thrombocytopenia [Recovered/Resolved]
  - Cytomegalovirus infection [Recovered/Resolved]
  - Bronchopulmonary aspergillosis [Recovered/Resolved]
  - Drug ineffective [Unknown]
  - Cytomegalovirus infection reactivation [Recovering/Resolving]
  - Diarrhoea [Unknown]
